FAERS Safety Report 22899909 (Version 23)
Quarter: 2024Q2

REPORT INFORMATION
  Report Type: Report from Study
  Country: CA (occurrence: CA)
  Receive Date: 20230904
  Receipt Date: 20240514
  Transmission Date: 20240716
  Serious: Yes (Other)
  Sender: FDA-Public Use
  Company Number: CA-GILEAD-2022-0608321

PATIENT
  Age: 80 Year
  Sex: Female
  Weight: 92 kg

DRUGS (136)
  1. SACITUZUMAB GOVITECAN-HZIY [Suspect]
     Active Substance: SACITUZUMAB GOVITECAN-HZIY
     Indication: Triple negative breast cancer
     Dosage: 525 MG
     Route: 042
     Dates: start: 20221129
  2. SACITUZUMAB GOVITECAN-HZIY [Suspect]
     Active Substance: SACITUZUMAB GOVITECAN-HZIY
     Dosage: 525 MG
     Route: 042
     Dates: start: 20221127
  3. SACITUZUMAB GOVITECAN-HZIY [Suspect]
     Active Substance: SACITUZUMAB GOVITECAN-HZIY
     Dosage: 940 MG, UNSPECIFIED CYCLE, D1, D8
     Route: 042
     Dates: start: 20221129, end: 20221206
  4. SACITUZUMAB GOVITECAN-HZIY [Suspect]
     Active Substance: SACITUZUMAB GOVITECAN-HZIY
     Dosage: 536 MG, UNSPECIFIED CYCLE, D1, D8
     Route: 042
     Dates: start: 20230106, end: 20230116
  5. SACITUZUMAB GOVITECAN-HZIY [Suspect]
     Active Substance: SACITUZUMAB GOVITECAN-HZIY
     Dosage: 546 MG
     Route: 042
  6. SACITUZUMAB GOVITECAN-HZIY [Suspect]
     Active Substance: SACITUZUMAB GOVITECAN-HZIY
     Dosage: 540 MG
     Route: 042
     Dates: start: 20230317
  7. SACITUZUMAB GOVITECAN-HZIY [Suspect]
     Active Substance: SACITUZUMAB GOVITECAN-HZIY
     Dosage: 531 MG
     Route: 042
  8. SACITUZUMAB GOVITECAN-HZIY [Suspect]
     Active Substance: SACITUZUMAB GOVITECAN-HZIY
     Dosage: 538 MG
     Route: 042
     Dates: start: 20230605, end: 20230612
  9. SACITUZUMAB GOVITECAN-HZIY [Suspect]
     Active Substance: SACITUZUMAB GOVITECAN-HZIY
     Dosage: 525 MG
     Route: 042
     Dates: start: 20230627
  10. SACITUZUMAB GOVITECAN-HZIY [Suspect]
     Active Substance: SACITUZUMAB GOVITECAN-HZIY
     Dosage: 538 MG
     Route: 042
  11. SACITUZUMAB GOVITECAN-HZIY [Suspect]
     Active Substance: SACITUZUMAB GOVITECAN-HZIY
     Dosage: 538 MG
     Route: 042
     Dates: start: 20221129
  12. SACITUZUMAB GOVITECAN-HZIY [Suspect]
     Active Substance: SACITUZUMAB GOVITECAN-HZIY
     Dosage: 538 MG
     Route: 042
     Dates: start: 20221129
  13. SACITUZUMAB GOVITECAN-HZIY [Suspect]
     Active Substance: SACITUZUMAB GOVITECAN-HZIY
     Dosage: 538 MG
     Route: 042
     Dates: start: 20221129
  14. SACITUZUMAB GOVITECAN-HZIY [Suspect]
     Active Substance: SACITUZUMAB GOVITECAN-HZIY
     Dosage: 538 MG
     Route: 042
     Dates: start: 20221129
  15. SACITUZUMAB GOVITECAN-HZIY [Suspect]
     Active Substance: SACITUZUMAB GOVITECAN-HZIY
     Dosage: UNSPECIFIED CYCLE D1, D8
     Route: 042
     Dates: start: 20231010, end: 20231017
  16. SACITUZUMAB GOVITECAN-HZIY [Suspect]
     Active Substance: SACITUZUMAB GOVITECAN-HZIY
     Dosage: UNSPECIFIED CYCLE D1
     Route: 042
     Dates: start: 20231107
  17. SACITUZUMAB GOVITECAN-HZIY [Suspect]
     Active Substance: SACITUZUMAB GOVITECAN-HZIY
     Dosage: UNK
     Route: 042
  18. SACITUZUMAB GOVITECAN-HZIY [Suspect]
     Active Substance: SACITUZUMAB GOVITECAN-HZIY
     Dosage: UNSPECIFIED CYCLE D1, D8
     Route: 042
     Dates: start: 20231128, end: 20231205
  19. SACITUZUMAB GOVITECAN-HZIY [Suspect]
     Active Substance: SACITUZUMAB GOVITECAN-HZIY
     Dosage: UNSPECIFIED CYCLE D1, D8
     Route: 042
     Dates: start: 20231229, end: 20240105
  20. SACITUZUMAB GOVITECAN-HZIY [Suspect]
     Active Substance: SACITUZUMAB GOVITECAN-HZIY
     Dosage: UNK
     Route: 042
     Dates: start: 20240114, end: 20240114
  21. SACITUZUMAB GOVITECAN-HZIY [Suspect]
     Active Substance: SACITUZUMAB GOVITECAN-HZIY
     Dosage: 525 MG, UNSPECIFIED CYCLE D1, D8
     Route: 042
     Dates: start: 20240118, end: 20240201
  22. SACITUZUMAB GOVITECAN-HZIY [Suspect]
     Active Substance: SACITUZUMAB GOVITECAN-HZIY
     Dosage: DAY1
     Route: 065
     Dates: start: 20240502
  23. ONDANSETRON [Concomitant]
     Active Substance: ONDANSETRON
     Dosage: 8 MG PO (PRE-MED)
  24. ONDANSETRON [Concomitant]
     Active Substance: ONDANSETRON
     Dosage: 16 MG PO (PRE-MEDICATION PRIOR TO TRODELVY)
  25. ONDANSETRON [Concomitant]
     Active Substance: ONDANSETRON
     Dosage: 16 MG PO (PRE-MEDICATION PRIOR TO TRODELVY)
  26. ONDANSETRON [Concomitant]
     Active Substance: ONDANSETRON
     Dosage: 16 MG PO (PRE-MEDICATION PRIOR TO TRODELVY)
  27. ONDANSETRON [Concomitant]
     Active Substance: ONDANSETRON
     Dosage: 16 MG PO (PRE-MEDICATION PRIOR TO TRODELVY)
  28. ONDANSETRON [Concomitant]
     Active Substance: ONDANSETRON
     Dosage: 16 MG PO (PRE-MEDICATION PRIOR TO TRODELVY)
  29. ONDANSETRON [Concomitant]
     Active Substance: ONDANSETRON
     Dosage: 16 MG PO (PRE-MEDICATION PRIOR TO TRODELVY)
  30. ONDANSETRON [Concomitant]
     Active Substance: ONDANSETRON
     Dosage: 16 MG PO (PRE-MEDICATION PRIOR TO TRODELVY)
  31. ONDANSETRON [Concomitant]
     Active Substance: ONDANSETRON
     Dosage: 16 MG PO (PRE-MEDICATION PRIOR TO TRODELVY)
  32. ONDANSETRON [Concomitant]
     Active Substance: ONDANSETRON
     Dosage: 16 MG PO (PRE-MEDICATION PRIOR TO TRODELVY)
  33. ONDANSETRON [Concomitant]
     Active Substance: ONDANSETRON
     Dosage: 16 MG PO (PRE-MEDICATION PRIOR TO TRODELVY)
  34. ONDANSETRON [Concomitant]
     Active Substance: ONDANSETRON
     Dosage: 16 MG PO (PRE-MEDICATION PRIOR TO TRODELVY)
  35. ONDANSETRON [Concomitant]
     Active Substance: ONDANSETRON
     Dosage: 16 MG PO (PRE-MEDICATION PRIOR TO TRODELVY)
  36. ONDANSETRON [Concomitant]
     Active Substance: ONDANSETRON
     Dosage: 16 MG PO (PRE-MEDICATION PRIOR TO TRODELVY)
  37. ONDANSETRON [Concomitant]
     Active Substance: ONDANSETRON
     Dosage: 16 MG PO (PRE-MEDICATION PRIOR TO TRODELVY)
  38. ONDANSETRON [Concomitant]
     Active Substance: ONDANSETRON
     Dosage: 16 MG PO (PRE-MEDICATION PRIOR TO TRODELVY)
  39. ONDANSETRON [Concomitant]
     Active Substance: ONDANSETRON
     Dosage: 16 MG PO (PRE-MEDICATION PRIOR TO TRODELVY)
  40. ONDANSETRON [Concomitant]
     Active Substance: ONDANSETRON
     Dosage: 16 MG PO (PRE-MEDICATION PRIOR TO TRODELVY)
  41. ONDANSETRON [Concomitant]
     Active Substance: ONDANSETRON
     Dosage: 16 MG PO (PRE-MEDICATION PRIOR TO TRODELVY)
  42. ONDANSETRON [Concomitant]
     Active Substance: ONDANSETRON
     Dosage: 16 MG PO (PRE-MEDICATION PRIOR TO TRODELVY)
  43. ONDANSETRON [Concomitant]
     Active Substance: ONDANSETRON
     Dosage: 16 MG PO (PRE-MEDICATION PRIOR TO TRODELVY)
  44. ONDANSETRON [Concomitant]
     Active Substance: ONDANSETRON
     Dosage: 16 MG PO (PRE-MEDICATION PRIOR TO TRODELVY)
  45. ONDANSETRON [Concomitant]
     Active Substance: ONDANSETRON
     Dosage: 15 MG PO (PRE-MEDICATION PRIOR TO TRODELVY)
  46. ONDANSETRON [Concomitant]
     Active Substance: ONDANSETRON
     Dosage: 15 MG PO (PRE-MEDICATION PRIOR TO TRODELVY)
  47. ONDANSETRON [Concomitant]
     Active Substance: ONDANSETRON
     Dosage: 15 MG PO (PRE-MEDICATION PRIOR TO TRODELVY)
  48. ONDANSETRON [Concomitant]
     Active Substance: ONDANSETRON
     Dosage: 15 MG PO (PRE-MEDICATION PRIOR TO TRODELVY)
  49. ONDANSETRON [Concomitant]
     Active Substance: ONDANSETRON
     Dosage: 15 MG PO (PRE-MEDICATION PRIOR TO TRODELVY)
  50. ONDANSETRON [Concomitant]
     Active Substance: ONDANSETRON
     Dosage: 15 MG PO (PRE-MEDICATION PRIOR TO TRODELVY)
  51. ONDANSETRON [Concomitant]
     Active Substance: ONDANSETRON
     Dosage: 15 MG PO (PRE-MEDICATION PRIOR TO TRODELVY)
  52. ONDANSETRON [Concomitant]
     Active Substance: ONDANSETRON
     Dosage: 15 MG PO (PRE-MEDICATION PRIOR TO TRODELVY)
  53. ONDANSETRON [Concomitant]
     Active Substance: ONDANSETRON
     Dosage: 15 MG PO (PRE-MEDICATION PRIOR TO TRODELVY)
  54. ONDANSETRON [Concomitant]
     Active Substance: ONDANSETRON
     Dosage: 15 MG PO (PRE-MEDICATION PRIOR TO TRODELVY)
  55. ONDANSETRON [Concomitant]
     Active Substance: ONDANSETRON
     Dosage: 15 MG PO (PRE-MEDICATION PRIOR TO TRODELVY)
  56. ONDANSETRON [Concomitant]
     Active Substance: ONDANSETRON
     Dosage: 15 MG PO (PRE-MEDICATION PRIOR TO TRODELVY)
     Route: 048
  57. ONDANSETRON [Concomitant]
     Active Substance: ONDANSETRON
     Dosage: 16 MG PO (PRE-MEDICATION PRIOR TO TRODELVY)
  58. DEXAMETHASONE [Concomitant]
     Active Substance: DEXAMETHASONE
     Dosage: 8 MG PO (PRE-MED)
  59. DEXAMETHASONE [Concomitant]
     Active Substance: DEXAMETHASONE
     Dosage: 10 MG, PRE-MEDICATION PRIOR TO TRODELVY
     Route: 048
  60. ACETAMINOPHEN [Concomitant]
     Active Substance: ACETAMINOPHEN
     Dosage: 650 MG PO (PRE-MEDICATION PRIOR TO TRODELVY)
     Route: 048
  61. ACETAMINOPHEN [Concomitant]
     Active Substance: ACETAMINOPHEN
     Dosage: 650 MG PO (PRE-MEDICATION PRIOR TO TRODELVY)
     Route: 048
  62. ACETAMINOPHEN [Concomitant]
     Active Substance: ACETAMINOPHEN
     Dosage: 650 MG PO (PRE-MEDICATION PRIOR TO TRODELVY)
  63. ACETAMINOPHEN [Concomitant]
     Active Substance: ACETAMINOPHEN
     Dosage: 650 MG PO (PRE-MEDICATION PRIOR TO TRODELVY)
  64. ACETAMINOPHEN [Concomitant]
     Active Substance: ACETAMINOPHEN
     Dosage: 650 MG PO (PRE-MEDICATION PRIOR TO TRODELVY)
  65. ACETAMINOPHEN [Concomitant]
     Active Substance: ACETAMINOPHEN
     Dosage: 650 MG PO (PRE-MEDICATION PRIOR TO TRODELVY)
  66. ACETAMINOPHEN [Concomitant]
     Active Substance: ACETAMINOPHEN
     Dosage: 650 MG PO (PRE-MEDICATION PRIOR TO TRODELVY)
  67. ACETAMINOPHEN [Concomitant]
     Active Substance: ACETAMINOPHEN
     Dosage: 650 MG PO (PRE-MEDICATION PRIOR TO TRODELVY)
  68. ACETAMINOPHEN [Concomitant]
     Active Substance: ACETAMINOPHEN
     Dosage: 650 MG PO (PRE-MEDICATION PRIOR TO TRODELVY)
  69. ACETAMINOPHEN [Concomitant]
     Active Substance: ACETAMINOPHEN
     Dosage: 650 MG PO (PRE-MEDICATION PRIOR TO TRODELVY)
  70. ACETAMINOPHEN [Concomitant]
     Active Substance: ACETAMINOPHEN
     Dosage: 650 MG PO (PRE-MEDICATION PRIOR TO TRODELVY)
  71. ACETAMINOPHEN [Concomitant]
     Active Substance: ACETAMINOPHEN
     Dosage: 650 MG PO (PRE-MEDICATION PRIOR TO TRODELVY)
  72. ACETAMINOPHEN [Concomitant]
     Active Substance: ACETAMINOPHEN
     Dosage: 650 MG PO (PRE-MEDICATION PRIOR TO TRODELVY)
  73. ACETAMINOPHEN [Concomitant]
     Active Substance: ACETAMINOPHEN
     Dosage: 650 MG PO (PRE-MEDICATION PRIOR TO TRODELVY)
  74. ACETAMINOPHEN [Concomitant]
     Active Substance: ACETAMINOPHEN
     Dosage: 650 MG PO (PRE-MEDICATION PRIOR TO TRODELVY)
  75. ACETAMINOPHEN [Concomitant]
     Active Substance: ACETAMINOPHEN
     Dosage: 650 MG PO (PRE-MEDICATION PRIOR TO TRODELVY)
  76. ACETAMINOPHEN [Concomitant]
     Active Substance: ACETAMINOPHEN
     Dosage: 650 MG PO (PRE-MEDICATION PRIOR TO TRODELVY)
  77. ACETAMINOPHEN [Concomitant]
     Active Substance: ACETAMINOPHEN
     Dosage: 650 MG PO (PRE-MEDICATION PRIOR TO TRODELVY)
  78. ACETAMINOPHEN [Concomitant]
     Active Substance: ACETAMINOPHEN
     Dosage: 650 MG PO (PRE-MEDICATION PRIOR TO TRODELVY)
  79. ACETAMINOPHEN [Concomitant]
     Active Substance: ACETAMINOPHEN
     Dosage: 650 MG PO (PRE-MEDICATION PRIOR TO TRODELVY)
  80. ACETAMINOPHEN [Concomitant]
     Active Substance: ACETAMINOPHEN
     Dosage: 650 MG PO (PRE-MEDICATION PRIOR TO TRODELVY)
  81. ACETAMINOPHEN [Concomitant]
     Active Substance: ACETAMINOPHEN
     Dosage: 650 MG PO (PRE-MEDICATION PRIOR TO TRODELVY)
  82. ACETAMINOPHEN [Concomitant]
     Active Substance: ACETAMINOPHEN
     Dosage: 650 MG PO (PRE-MEDICATION PRIOR TO TRODELVY)
  83. ACETAMINOPHEN [Concomitant]
     Active Substance: ACETAMINOPHEN
     Dosage: 650 MG PO (PRE-MEDICATION PRIOR TO TRODELVY)
  84. ACETAMINOPHEN [Concomitant]
     Active Substance: ACETAMINOPHEN
     Dosage: 650 MG PO (PRE-MEDICATION PRIOR TO TRODELVY)
  85. ACETAMINOPHEN [Concomitant]
     Active Substance: ACETAMINOPHEN
     Dosage: 650 MG PO (PRE-MEDICATION PRIOR TO TRODELVY)
  86. ACETAMINOPHEN [Concomitant]
     Active Substance: ACETAMINOPHEN
     Dosage: 650 MG PO (PRE-MEDICATION PRIOR TO TRODELVY)
  87. ACETAMINOPHEN [Concomitant]
     Active Substance: ACETAMINOPHEN
     Dosage: 650 MG PO (PRE-MEDICATION PRIOR TO TRODELVY)
  88. ACETAMINOPHEN [Concomitant]
     Active Substance: ACETAMINOPHEN
     Dosage: 650 MG PO (PRE-MEDICATION PRIOR TO TRODELVY)
  89. ACETAMINOPHEN [Concomitant]
     Active Substance: ACETAMINOPHEN
     Dosage: 650 MG PO (PRE-MEDICATION PRIOR TO TRODELVY)
  90. ACETAMINOPHEN [Concomitant]
     Active Substance: ACETAMINOPHEN
     Dosage: 650 MG PO (PRE-MEDICATION PRIOR TO TRODELVY)
  91. ACETAMINOPHEN [Concomitant]
     Active Substance: ACETAMINOPHEN
     Dosage: 650 MG PO (PRE-MEDICATION PRIOR TO TRODELVY)
  92. ACETAMINOPHEN [Concomitant]
     Active Substance: ACETAMINOPHEN
     Dosage: 650 MG PO (PRE-MEDICATION PRIOR TO TRODELVY)
  93. ACETAMINOPHEN [Concomitant]
     Active Substance: ACETAMINOPHEN
     Dosage: 650 MG PO (PRE-MEDICATION PRIOR TO TRODELVY)
  94. RANITIDINE [Concomitant]
     Active Substance: RANITIDINE
     Dosage: 10 MG PO (PRE-MEDICATION PRIOR TO TRODELVY)
  95. DIPHENHYDRAMINE [Concomitant]
     Active Substance: DIPHENHYDRAMINE
     Dosage: 25 MG PO (PRE-MEDICATION PRIOR TO TRODELVY)
  96. DIPHENHYDRAMINE [Concomitant]
     Active Substance: DIPHENHYDRAMINE
     Dosage: 25 MG PO (PRE-MEDICATION PRIOR TO TRODELVY)
  97. DIPHENHYDRAMINE [Concomitant]
     Active Substance: DIPHENHYDRAMINE
     Dosage: 25 MG PO (PRE-MEDICATION PRIOR TO TRODELVY)
  98. DIPHENHYDRAMINE [Concomitant]
     Active Substance: DIPHENHYDRAMINE
     Dosage: 25 MG PO (PRE-MEDICATION PRIOR TO TRODELVY)
  99. DIPHENHYDRAMINE [Concomitant]
     Active Substance: DIPHENHYDRAMINE
     Dosage: 25 MG PIV (PRE-MEDICATION PRIOR TO TRODELVY)
  100. DIPHENHYDRAMINE [Concomitant]
     Active Substance: DIPHENHYDRAMINE
     Dosage: 25 MG PIV (PRE-MEDICATION PRIOR TO TRODELVY)
  101. DIPHENHYDRAMINE [Concomitant]
     Active Substance: DIPHENHYDRAMINE
     Dosage: 25 MG PIV (PRE-MEDICATION PRIOR TO TRODELVY)
  102. DIPHENHYDRAMINE [Concomitant]
     Active Substance: DIPHENHYDRAMINE
     Dosage: 25 MG PIV (PRE-MEDICATION PRIOR TO TRODELVY)
  103. DIPHENHYDRAMINE [Concomitant]
     Active Substance: DIPHENHYDRAMINE
     Dosage: 25 MG PIV (PRE-MEDICATION PRIOR TO TRODELVY)
  104. DIPHENHYDRAMINE [Concomitant]
     Active Substance: DIPHENHYDRAMINE
     Dosage: 25 MG PIV (PRE-MEDICATION PRIOR TO TRODELVY)
  105. DIPHENHYDRAMINE [Concomitant]
     Active Substance: DIPHENHYDRAMINE
     Dosage: 25 MG PIV (PRE-MEDICATION PRIOR TO TRODELVY)
  106. DIPHENHYDRAMINE [Concomitant]
     Active Substance: DIPHENHYDRAMINE
     Dosage: 25 MG PIV (PRE-MEDICATION PRIOR TO TRODELVY)
  107. DIPHENHYDRAMINE [Concomitant]
     Active Substance: DIPHENHYDRAMINE
     Dosage: 25 MG PIV (PRE-MEDICATION PRIOR TO TRODELVY)
  108. DIPHENHYDRAMINE [Concomitant]
     Active Substance: DIPHENHYDRAMINE
     Dosage: 25 MG PIV (PRE-MEDICATION PRIOR TO TRODELVY)
  109. DIPHENHYDRAMINE [Concomitant]
     Active Substance: DIPHENHYDRAMINE
     Dosage: 25 MG PIV (PRE-MEDICATION PRIOR TO TRODELVY)
  110. DIPHENHYDRAMINE [Concomitant]
     Active Substance: DIPHENHYDRAMINE
     Dosage: 25 MG PIV (PRE-MEDICATION PRIOR TO TRODELVY)
  111. DIPHENHYDRAMINE [Concomitant]
     Active Substance: DIPHENHYDRAMINE
     Dosage: 25 MG CAVD(PRE-MEDICATION PRIOR TO TRODELVY)
  112. DIPHENHYDRAMINE [Concomitant]
     Active Substance: DIPHENHYDRAMINE
     Dosage: 25 MG CAVD(PRE-MEDICATION PRIOR TO TRODELVY)
  113. DIPHENHYDRAMINE [Concomitant]
     Active Substance: DIPHENHYDRAMINE
     Dosage: 25 MG CAVD(PRE-MEDICATION PRIOR TO TRODELVY)
  114. DIPHENHYDRAMINE [Concomitant]
     Active Substance: DIPHENHYDRAMINE
     Dosage: 25 MG CAVD(PRE-MEDICATION PRIOR TO TRODELVY)
  115. DIPHENHYDRAMINE [Concomitant]
     Active Substance: DIPHENHYDRAMINE
     Dosage: 25 MG CAVD(PRE-MEDICATION PRIOR TO TRODELVY)
  116. DIPHENHYDRAMINE [Concomitant]
     Active Substance: DIPHENHYDRAMINE
     Dosage: 25 MG CAVD(PRE-MEDICATION PRIOR TO TRODELVY)
  117. DIPHENHYDRAMINE [Concomitant]
     Active Substance: DIPHENHYDRAMINE
     Dosage: 25 MG IV (PRE-MEDICATION PRIOR TO TRODELVY)
  118. DIPHENHYDRAMINE [Concomitant]
     Active Substance: DIPHENHYDRAMINE
     Dosage: 25 MG IV (PRE-MEDICATION PRIOR TO TRODELVY)
  119. DIPHENHYDRAMINE [Concomitant]
     Active Substance: DIPHENHYDRAMINE
     Dosage: 25 MG IV (PRE-MEDICATION PRIOR TO TRODELVY)
  120. DIPHENHYDRAMINE [Concomitant]
     Active Substance: DIPHENHYDRAMINE
     Dosage: 25 MG IV (PRE-MEDICATION PRIOR TO TRODELVY)
  121. DIPHENHYDRAMINE [Concomitant]
     Active Substance: DIPHENHYDRAMINE
     Dosage: 25 MG IV (PRE-MEDICATION PRIOR TO TRODELVY)
     Route: 042
  122. DECADRON [Concomitant]
     Active Substance: DEXAMETHASONE
     Dosage: 10 MG PO (PRE-MEDICATION PRIOR TO TRODELVY)
  123. FAMOTIDINE [Concomitant]
     Active Substance: FAMOTIDINE
     Dosage: 40 MG PO (PRE-MEDICATION PRIOR TO TRODELVY)
  124. FAMOTIDINE [Concomitant]
     Active Substance: FAMOTIDINE
     Dosage: 40 MG PO (PRE-MEDICATION PRIOR TO TRODELVY)
  125. FAMOTIDINE [Concomitant]
     Active Substance: FAMOTIDINE
     Dosage: 40 MG PO (PRE-MEDICATION PRIOR TO TRODELVY)
  126. FAMOTIDINE [Concomitant]
     Active Substance: FAMOTIDINE
     Dosage: 40 MG PO (PRE-MEDICATION PRIOR TO TRODELVY)
  127. FAMOTIDINE [Concomitant]
     Active Substance: FAMOTIDINE
     Dosage: 40 MG PO (PRE-MEDICATION PRIOR TO TRODELVY)
  128. FAMOTIDINE [Concomitant]
     Active Substance: FAMOTIDINE
     Dosage: 40 MG PO (PRE-MEDICATION PRIOR TO TRODELVY)
  129. FAMOTIDINE [Concomitant]
     Active Substance: FAMOTIDINE
     Dosage: 20 MG IV(PRE-MEDICATION PRIOR TO TRODELVY)
  130. FAMOTIDINE [Concomitant]
     Active Substance: FAMOTIDINE
     Dosage: 20 MG IV(PRE-MEDICATION PRIOR TO TRODELVY)
  131. FAMOTIDINE [Concomitant]
     Active Substance: FAMOTIDINE
     Dosage: 20 MG IV(PRE-MEDICATION PRIOR TO TRODELVY)
  132. FAMOTIDINE [Concomitant]
     Active Substance: FAMOTIDINE
     Dosage: 20 MG IV(PRE-MEDICATION PRIOR TO TRODELVY)
  133. FAMOTIDINE [Concomitant]
     Active Substance: FAMOTIDINE
     Dosage: 20 MG IV(PRE-MEDICATION PRIOR TO TRODELVY)
  134. FAMOTIDINE [Concomitant]
     Active Substance: FAMOTIDINE
     Dosage: 20 MG IV(PRE-MEDICATION PRIOR TO TRODELVY)
  135. FAMOTIDINE [Concomitant]
     Active Substance: FAMOTIDINE
     Dosage: 20 MG IV(PRE-MEDICATION PRIOR TO TRODELVY)
  136. FAMOTIDINE [Concomitant]
     Active Substance: FAMOTIDINE
     Dosage: 20 MG IV(PRE-MEDICATION PRIOR TO TRODELVY)

REACTIONS (27)
  - Pulmonary embolism [Recovering/Resolving]
  - Transfusion related complication [Not Recovered/Not Resolved]
  - Pneumonia [Unknown]
  - Balance disorder [Not Recovered/Not Resolved]
  - Eastern Cooperative Oncology Group performance status abnormal [Not Recovered/Not Resolved]
  - Weight fluctuation [Not Recovered/Not Resolved]
  - Weight fluctuation [Not Recovered/Not Resolved]
  - Weight decreased [Unknown]
  - Weight decreased [Not Recovered/Not Resolved]
  - Fatigue [Not Recovered/Not Resolved]
  - Hypotension [Recovered/Resolved]
  - Off label use [Unknown]
  - Inappropriate schedule of product administration [Unknown]
  - Inappropriate schedule of product administration [Recovered/Resolved]
  - Inappropriate schedule of product administration [Recovered/Resolved]
  - Off label use [Not Recovered/Not Resolved]
  - Iron deficiency anaemia [Unknown]
  - Malaise [Unknown]
  - COVID-19 [Unknown]
  - Inappropriate schedule of product administration [Recovered/Resolved]
  - Neutrophil count decreased [Unknown]
  - Inappropriate schedule of product administration [Recovered/Resolved]
  - Weight fluctuation [Unknown]
  - Weight fluctuation [Not Recovered/Not Resolved]
  - Hypertension [Unknown]
  - Inappropriate schedule of product administration [Recovered/Resolved]
  - Inappropriate schedule of product administration [Unknown]

NARRATIVE: CASE EVENT DATE: 20230105
